FAERS Safety Report 19086966 (Version 1)
Quarter: 2021Q2

REPORT INFORMATION
  Report Type: Spontaneous
  Country: US (occurrence: US)
  Receive Date: 20210402
  Receipt Date: 20210402
  Transmission Date: 20210717
  Serious: Yes (Hospitalization, Other)
  Sender: FDA-Public Use
  Company Number: US-SUNOVION-2021SUN001108

PATIENT
  Sex: Female

DRUGS (5)
  1. PRISTIQ EXTENDED?RELEASE [Suspect]
     Active Substance: DESVENLAFAXINE SUCCINATE
     Dosage: UNK
     Dates: start: 202003, end: 202011
  2. PAXIL [Suspect]
     Active Substance: PAROXETINE HYDROCHLORIDE
     Dosage: UNK
  3. LAMICTAL [Suspect]
     Active Substance: LAMOTRIGINE
     Dosage: UNK
  4. LATUDA [Suspect]
     Active Substance: LURASIDONE HYDROCHLORIDE
     Indication: BIPOLAR I DISORDER
     Dosage: 120 MG, QD
     Route: 048
     Dates: start: 2015
  5. LATUDA [Suspect]
     Active Substance: LURASIDONE HYDROCHLORIDE
     Dosage: 100 MG
     Route: 048

REACTIONS (7)
  - Body temperature increased [Unknown]
  - Vomiting [Unknown]
  - Suicidal ideation [Unknown]
  - Depression [Unknown]
  - Psychomotor hyperactivity [Unknown]
  - Heart rate irregular [Unknown]
  - Panic attack [Unknown]

NARRATIVE: CASE EVENT DATE: 2016
